FAERS Safety Report 9908190 (Version 1)
Quarter: 2014Q1

REPORT INFORMATION
  Report Type: Spontaneous
  Country: US (occurrence: None)
  Receive Date: 20140211
  Receipt Date: 20140211
  Transmission Date: 20141002
  Serious: Yes (Other)
  Sender: FDA-Public Use
  Company Number: SYM-2014-17012

PATIENT
  Age: 55 Year
  Sex: Female

DRUGS (1)
  1. XENAZINE [Suspect]
     Indication: DYSKINESIA
     Dosage: 12.5MG, 3 IN 1 D, ORAL
     Route: 048
     Dates: start: 20110906

REACTIONS (2)
  - Blood glucose abnormal [None]
  - General physical condition abnormal [None]
